FAERS Safety Report 16488803 (Version 1)
Quarter: 2019Q2

REPORT INFORMATION
  Report Type: Spontaneous
  Country: US (occurrence: US)
  Receive Date: 20190627
  Receipt Date: 20190627
  Transmission Date: 20190711
  Serious: Yes (Other)
  Sender: FDA-Public Use
  Company Number: US-ABBVIE-19K-163-2831594-00

PATIENT
  Sex: Female

DRUGS (1)
  1. LUPRON DEPOT [Suspect]
     Active Substance: LEUPROLIDE ACETATE
     Indication: ENDOMETRIOSIS
     Route: 065
     Dates: start: 2018

REACTIONS (8)
  - Cyst [Unknown]
  - Pain [Recovered/Resolved]
  - Gait disturbance [Unknown]
  - Unevaluable event [Unknown]
  - Pain [Unknown]
  - Ovarian cyst [Unknown]
  - Endometriosis [Unknown]
  - Pelvic cyst [Unknown]

NARRATIVE: CASE EVENT DATE: 2018
